FAERS Safety Report 4333718-X (Version None)
Quarter: 2004Q2

REPORT INFORMATION
  Report Type: 
  Country: None (occurrence: None)
  Receive Date: 20040402
  Receipt Date: 20040325
  Transmission Date: 20050107
  Serious: Yes (Hospitalization)
  Sender: FDA-Public Use
  Company Number: US070406

PATIENT
  Age: 39 Year
  Sex: Female

DRUGS (2)
  1. ARANESP [Suspect]
     Indication: MYELODYSPLASTIC SYNDROME
     Dosage: 300 MCG, 1 IN 3 WEEKS, SC
     Route: 058
     Dates: start: 20031223, end: 20040310
  2. BLOOD CELLS, PACKED HUMAN [Concomitant]

REACTIONS (6)
  - CHEST PAIN [None]
  - HAEMOGLOBIN DECREASED [None]
  - PLATELET COUNT INCREASED [None]
  - PLEURITIC PAIN [None]
  - PULMONARY EMBOLISM [None]
  - WHITE BLOOD CELL COUNT INCREASED [None]
